FAERS Safety Report 12574656 (Version 1)
Quarter: 2016Q3

REPORT INFORMATION
  Report Type: Spontaneous
  Country: AT (occurrence: AT)
  Receive Date: 20160720
  Receipt Date: 20160720
  Transmission Date: 20161109
  Serious: Yes (Other)
  Sender: FDA-Public Use
  Company Number: AT-PFIZER INC-2016072186

PATIENT
  Age: 49 Year
  Sex: Female

DRUGS (7)
  1. CONVULEX [Suspect]
     Active Substance: VALPROIC ACID
     Dosage: 500 MG, UNK
     Route: 042
     Dates: start: 20151107, end: 20151119
  2. ABILIFY [Suspect]
     Active Substance: ARIPIPRAZOLE
     Dosage: 15 MG, UNK
     Route: 042
     Dates: start: 20151111, end: 20151116
  3. TEMESTA [Suspect]
     Active Substance: LORAZEPAM
     Dosage: 4 MG, UNK
     Route: 042
     Dates: start: 20151107, end: 20151107
  4. ABILIFY [Suspect]
     Active Substance: ARIPIPRAZOLE
     Dosage: 30 MG, UNK
     Route: 042
     Dates: start: 20151110, end: 20151110
  5. TEMESTA [Suspect]
     Active Substance: LORAZEPAM
     Dosage: 6 MG, UNK
     Route: 042
     Dates: start: 20151108, end: 20151109
  6. ABILIFY [Suspect]
     Active Substance: ARIPIPRAZOLE
     Dosage: 15 MG, UNK
     Route: 042
     Dates: start: 20151108, end: 20151109
  7. CONVULEX [Suspect]
     Active Substance: VALPROIC ACID
     Dosage: 1200 MG, UNK
     Route: 042
     Dates: start: 20151120

REACTIONS (4)
  - Hypotension [Unknown]
  - Cold sweat [Unknown]
  - Circulatory collapse [Recovered/Resolved]
  - Fall [Unknown]

NARRATIVE: CASE EVENT DATE: 201511
